FAERS Safety Report 10241096 (Version 1)
Quarter: 2014Q2

REPORT INFORMATION
  Report Type: Spontaneous
  Country: FR (occurrence: FR)
  Receive Date: 20140617
  Receipt Date: 20140617
  Transmission Date: 20141212
  Serious: Yes (Hospitalization)
  Sender: FDA-Public Use
  Company Number: PHHY2014FR073668

PATIENT
  Age: 65 Year
  Sex: Female

DRUGS (4)
  1. GLIVEC [Suspect]
     Indication: CHRONIC MYELOID LEUKAEMIA
     Dosage: 400 MG, QD
     Route: 048
     Dates: start: 20140219, end: 20140415
  2. ALLOPURINOL [Suspect]
     Indication: HYPERURICAEMIA
     Dosage: 200 MG, QD
     Route: 048
     Dates: start: 20140219, end: 20140415
  3. DOMPERIDONE [Suspect]
     Indication: NAUSEA
     Dosage: UNK UKN, UNK
     Route: 048
     Dates: start: 20140306, end: 20140415
  4. LEVOTHYROX [Concomitant]
     Indication: HYPOTHYROIDISM
     Dosage: 5 UG, UNK
     Route: 048

REACTIONS (5)
  - Enanthema [Recovered/Resolved]
  - Mouth ulceration [Recovered/Resolved]
  - Eosinophilia [Not Recovered/Not Resolved]
  - Rash maculo-papular [Recovered/Resolved]
  - Pruritus [Recovered/Resolved]
